FAERS Safety Report 24232224 (Version 2)
Quarter: 2024Q3

REPORT INFORMATION
  Report Type: Spontaneous
  Country: US (occurrence: US)
  Receive Date: 20240821
  Receipt Date: 20240923
  Transmission Date: 20241016
  Serious: Yes (Other)
  Sender: PFIZER
  Company Number: US-PFIZER INC-PV202400023460

PATIENT
  Age: 76 Year
  Sex: Female

DRUGS (2)
  1. DAURISMO [Suspect]
     Active Substance: GLASDEGIB
     Dosage: 75 MG, CYCLIC, TAKE 1 PILL FOR 21 DAYS ON AND 14 DAYS OFF
  2. IBRANCE [Suspect]
     Active Substance: PALBOCICLIB
     Dosage: UNK

REACTIONS (3)
  - Neutropenia [Unknown]
  - Product prescribing error [Unknown]
  - Off label use [Unknown]
